FAERS Safety Report 5753028-3 (Version None)
Quarter: 2008Q2

REPORT INFORMATION
  Report Type: 
  Country: None (occurrence: None)
  Receive Date: 20080527
  Receipt Date: 20080515
  Transmission Date: 20081010
  Serious: Yes (Life-Threatening, Hospitalization, Disabling)
  Sender: FDA-Public Use
  Company Number: GXKR2008GB04491

PATIENT
  Age: 74 Year
  Sex: Male
  Weight: 65 kg

DRUGS (6)
  1. ACETYLSALICYLIC ACID SRT [Suspect]
     Indication: ISCHAEMIC STROKE
     Dosage: 300 MG,  ORAL
     Route: 048
     Dates: start: 20080302, end: 20080304
  2. ACTIVASE [Suspect]
     Indication: ISCHAEMIC STROKE
     Dosage: 63 MG
     Dates: start: 20080303, end: 20080303
  3. AMITRIPTLINE HCL [Concomitant]
  4. DONEPEZIL HCL [Concomitant]
  5. TEMAZEPAM [Concomitant]
  6. TRAMADOL HCL [Concomitant]

REACTIONS (2)
  - CEREBRAL HAEMATOMA [None]
  - CEREBRAL HAEMORRHAGE [None]
